FAERS Safety Report 9937741 (Version 1)
Quarter: 2014Q1

REPORT INFORMATION
  Report Type: Spontaneous
  Country: US (occurrence: US)
  Receive Date: 20140303
  Receipt Date: 20140303
  Transmission Date: 20141002
  Serious: No
  Sender: FDA-Public Use
  Company Number: US-BIOGENIDEC-2014BI016002

PATIENT
  Age: 21 Year
  Sex: Female

DRUGS (4)
  1. TECFIDERA [Suspect]
     Indication: MULTIPLE SCLEROSIS
     Route: 048
     Dates: start: 201401, end: 201402
  2. TECFIDERA [Suspect]
     Indication: MULTIPLE SCLEROSIS
     Route: 048
     Dates: start: 201402
  3. LOMOTIL [Concomitant]
  4. ZOFRAN [Concomitant]
     Dates: start: 20140210

REACTIONS (5)
  - Decreased appetite [Unknown]
  - Constipation [Unknown]
  - Flushing [Unknown]
  - Abdominal pain [Unknown]
  - Nausea [Unknown]
